FAERS Safety Report 7229728-5 (Version None)
Quarter: 2011Q1

REPORT INFORMATION
  Report Type: 
  Country: None (occurrence: None)
  Receive Date: 20110117
  Receipt Date: 20110112
  Transmission Date: 20110831
  Serious: Yes (Hospitalization)
  Sender: FDA-Public Use
  Company Number: KR-ABBOTT-11P-090-0697026-00

PATIENT
  Sex: Male

DRUGS (4)
  1. PROSCAR [Concomitant]
     Indication: ALOPECIA
     Route: 048
  2. KOREAEUNDAN VLLC [Concomitant]
     Indication: PRODUCT USED FOR UNKNOWN INDICATION
     Route: 048
  3. KILATILIN [Concomitant]
     Indication: PRODUCT USED FOR UNKNOWN INDICATION
     Route: 048
  4. DEPAKOTE ER [Suspect]
     Indication: PRODUCT USED FOR UNKNOWN INDICATION
     Route: 048

REACTIONS (8)
  - TREMOR [None]
  - GAIT DISTURBANCE [None]
  - BRAIN OEDEMA [None]
  - PROCEDURAL PAIN [None]
  - SPEECH DISORDER [None]
  - DIZZINESS [None]
  - HEADACHE [None]
  - SOMNOLENCE [None]
